FAERS Safety Report 22601194 (Version 1)
Quarter: 2023Q2

REPORT INFORMATION
  Report Type: Spontaneous
  Country: CN (occurrence: None)
  Receive Date: 20230614
  Receipt Date: 20230614
  Transmission Date: 20230721
  Serious: Yes (Other)
  Sender: FDA-Public Use
  Company Number: 2023A133000

PATIENT
  Age: 25322 Day
  Sex: Male
  Weight: 58.5 kg

DRUGS (3)
  1. DURVALUMAB [Suspect]
     Active Substance: DURVALUMAB
     Indication: Lung neoplasm malignant
     Dosage: 1.5G ONCE/SINGLE ADMINISTRATION
     Route: 041
     Dates: start: 20230315, end: 20230315
  2. ETOPOSIDE [Suspect]
     Active Substance: ETOPOSIDE
     Indication: Lung neoplasm malignant
     Dosage: 160.0MG ONCE/SINGLE ADMINISTRATION
     Route: 041
     Dates: start: 20230315, end: 20230317
  3. CARBOPLATIN [Suspect]
     Active Substance: CARBOPLATIN
     Indication: Lung neoplasm malignant
     Dosage: 560.0MG ONCE/SINGLE ADMINISTRATION
     Route: 041
     Dates: start: 20230315, end: 20230315

REACTIONS (1)
  - Myelosuppression [Recovering/Resolving]

NARRATIVE: CASE EVENT DATE: 20230324
